FAERS Safety Report 8243339-4 (Version None)
Quarter: 2012Q1

REPORT INFORMATION
  Report Type: 
  Country: None (occurrence: None)
  Receive Date: 20120329
  Receipt Date: 20120315
  Transmission Date: 20120608
  Serious: Yes (Hospitalization, Other)
  Sender: FDA-Public Use
  Company Number: US-ROCHE-1049972

PATIENT
  Age: 91 Year
  Sex: Female
  Weight: 38.59 kg

DRUGS (1)
  1. XELODA [Suspect]
     Indication: COLORECTAL CANCER METASTATIC
     Dosage: 1000 MG IN MORNING, 500 MG IN EVENING
     Route: 048
     Dates: start: 20110301, end: 20120302

REACTIONS (6)
  - UNEVALUABLE EVENT [None]
  - FALL [None]
  - LIMB DISCOMFORT [None]
  - ATRIAL FIBRILLATION [None]
  - PAIN [None]
  - PULMONARY OEDEMA [None]
